FAERS Safety Report 17054588 (Version 2)
Quarter: 2019Q4

REPORT INFORMATION
  Report Type: Spontaneous
  Country: CN (occurrence: CN)
  Receive Date: 20191120
  Receipt Date: 20191202
  Transmission Date: 20200122
  Serious: Yes (Other)
  Sender: FDA-Public Use
  Company Number: CN-BAYER-2019-201645

PATIENT
  Age: 44 Year
  Sex: Female

DRUGS (2)
  1. AVELOX [Suspect]
     Active Substance: MOXIFLOXACIN HYDROCHLORIDE
     Indication: EAR PAIN
     Dosage: UNK
     Route: 048
     Dates: start: 201905, end: 201905
  2. AVELOX [Suspect]
     Active Substance: MOXIFLOXACIN HYDROCHLORIDE
     Indication: EAR PAIN
     Dosage: UNK
     Route: 048
     Dates: start: 20191101, end: 20191101

REACTIONS (14)
  - Asthenia [Recovered/Resolved]
  - Drug hypersensitivity [Recovered/Resolved]
  - Sinus rhythm [Recovered/Resolved]
  - Dizziness [Recovered/Resolved]
  - Syncope [Recovered/Resolved]
  - Urinary incontinence [Recovered/Resolved]
  - Off label use [None]
  - Electrocardiogram PR shortened [Recovered/Resolved]
  - Dysstasia [Recovered/Resolved]
  - Product use in unapproved indication [None]
  - Anaphylactic shock [Recovered/Resolved]
  - Extrasystoles [Recovered/Resolved]
  - Coma [Recovered/Resolved]
  - Hypoaesthesia [Recovered/Resolved]

NARRATIVE: CASE EVENT DATE: 201905
